FAERS Safety Report 8488859-2 (Version None)
Quarter: 2012Q2

REPORT INFORMATION
  Report Type: 
  Country: None (occurrence: None)
  Receive Date: 20120626
  Receipt Date: 20120619
  Transmission Date: 20120825
  Serious: Yes (Life-Threatening)
  Sender: FDA-Public Use
  Company Number: 2012SP032632

PATIENT
  Age: 41 Year
  Sex: Female

DRUGS (1)
  1. DESLORATADINE [Suspect]
     Indication: PALATAL OEDEMA
     Dosage: 5 MG;ONCE;PO
     Route: 048
     Dates: start: 20120614, end: 20120614

REACTIONS (2)
  - ANAPHYLACTIC SHOCK [None]
  - OFF LABEL USE [None]
